FAERS Safety Report 5050279-0 (Version None)
Quarter: 2006Q3

REPORT INFORMATION
  Report Type: 
  Country: None (occurrence: None)
  Receive Date: 20060713
  Receipt Date: 20060707
  Transmission Date: 20061208
  Serious: Yes (Hospitalization)
  Sender: FDA-Public Use
  Company Number: 2006CG01218

PATIENT
  Age: 846 Month
  Sex: Female

DRUGS (10)
  1. CRESTOR [Suspect]
     Indication: HYPERCHOLESTEROLAEMIA
     Route: 048
     Dates: end: 20060609
  2. ATACAND [Concomitant]
     Route: 048
  3. AMLOR [Concomitant]
     Route: 048
  4. DEPAKOTE [Concomitant]
  5. ESIDRIX [Concomitant]
  6. LOXAPAC [Concomitant]
     Route: 048
  7. NORMISON [Concomitant]
  8. DIVARIUS [Concomitant]
  9. SERESTA [Concomitant]
  10. SULFARLEM [Concomitant]

REACTIONS (1)
  - TENDON RUPTURE [None]
